FAERS Safety Report 14408637 (Version 3)
Quarter: 2018Q1

REPORT INFORMATION
  Report Type: Report from Study
  Country: HK (occurrence: HK)
  Receive Date: 20180118
  Receipt Date: 20180209
  Transmission Date: 20180509
  Serious: Yes (Hospitalization)
  Sender: FDA-Public Use
  Company Number: HK-AMGEN-HKGCT2018006481

PATIENT
  Age: 72 Year
  Sex: Female

DRUGS (22)
  1. EVOLOCUMAB [Suspect]
     Active Substance: EVOLOCUMAB
     Dosage: 420 MG, Q2WK
     Route: 058
     Dates: start: 20140702
  2. DIGOXIN. [Concomitant]
     Active Substance: DIGOXIN
     Dosage: 62.5 MUG, QD
     Route: 048
     Dates: start: 20160926
  3. PERINDOPRIL TERT BUTYLAMINE [Concomitant]
     Active Substance: PERINDOPRIL ERBUMINE
     Dosage: 4-8 MG, QD
     Route: 048
     Dates: start: 20150417
  4. CHOLESTYRAMIN [Concomitant]
     Dosage: 1 SACHET, BID
     Route: 048
     Dates: start: 20160728
  5. SALBUTAMOL SULFATE [Concomitant]
     Active Substance: ALBUTEROL SULFATE
     Dosage: 100 MUG, 4 PUFF UNK
     Dates: start: 20171225
  6. AMLODIPINE [Concomitant]
     Active Substance: AMLODIPINE BESYLATE
     Dosage: 25 MG, QD
     Route: 048
     Dates: start: 20150521
  7. DONEPEZIL. [Concomitant]
     Active Substance: DONEPEZIL
     Dosage: 10 MG, NOCTE
     Route: 048
     Dates: start: 20160926
  8. HYPROMELLOSE [Concomitant]
     Active Substance: HYPROMELLOSES
     Dosage: 1 GTT, QID PRN
     Route: 047
     Dates: start: 20140508
  9. PREFILLED AUTOINJECTOR/PEN [Suspect]
     Active Substance: DEVICE
     Dosage: UNK
     Route: 058
     Dates: start: 20140702
  10. CRESTOR [Concomitant]
     Active Substance: ROSUVASTATIN CALCIUM
     Dosage: 40 MG, QD
     Route: 048
     Dates: start: 20080317
  11. ZINC. [Concomitant]
     Active Substance: ZINC
     Dosage: 1 APPLICATION, TID
     Route: 061
     Dates: start: 20171228, end: 20180101
  12. METOCLOPRAMIDE. [Concomitant]
     Active Substance: METOCLOPRAMIDE
     Dosage: 10 MG, TID PRN
     Route: 048
     Dates: start: 20180108, end: 20180109
  13. REMERON [Concomitant]
     Active Substance: MIRTAZAPINE
  14. EVOLOCUMAB [Suspect]
     Active Substance: EVOLOCUMAB
     Indication: TYPE IIA HYPERLIPIDAEMIA
     Dosage: 420 MG, Q4WK
     Route: 058
     Dates: start: 20140105, end: 20140609
  15. PREFILLED AUTOINJECTOR/PEN [Suspect]
     Active Substance: DEVICE
     Indication: TYPE IIA HYPERLIPIDAEMIA
     Dosage: UNK
     Route: 058
     Dates: start: 20140105, end: 20140609
  16. RABEPRAZOLE SODIUM. [Concomitant]
     Active Substance: RABEPRAZOLE SODIUM
     Dosage: 20 MG, QD
     Route: 048
     Dates: start: 20150505
  17. EZETIMIBE. [Concomitant]
     Active Substance: EZETIMIBE
     Dosage: 10 MG, QD
     Route: 048
     Dates: start: 20060410
  18. TERAZOSIN [Concomitant]
     Active Substance: TERAZOSIN\TERAZOSIN HYDROCHLORIDE
     Dosage: 4 MG, NOCTE
     Route: 048
     Dates: start: 20160503
  19. BROMHEXINE [Concomitant]
     Active Substance: BROMHEXINE
     Dosage: 8 MG, TID
     Route: 048
     Dates: start: 20171225
  20. CITALOPRAM [Concomitant]
     Active Substance: CITALOPRAM HYDROBROMIDE
     Dosage: 10 MG, QD
     Route: 048
     Dates: start: 20161222
  21. YUNNANBAIYAO [Concomitant]
     Dosage: 1 PATCH, AS NECESSARY
     Route: 061
     Dates: start: 20150701
  22. DABIGATRAN [Concomitant]
     Active Substance: DABIGATRAN
     Dosage: 150 MG, BID

REACTIONS (1)
  - Acute myocardial infarction [Recovering/Resolving]

NARRATIVE: CASE EVENT DATE: 20180108
